FAERS Safety Report 5368787-1 (Version None)
Quarter: 2007Q2

REPORT INFORMATION
  Report Type: 
  Country: None (occurrence: None)
  Receive Date: 20070625
  Receipt Date: 20070620
  Transmission Date: 20071010
  Serious: Yes (Hospitalization)
  Sender: FDA-Public Use
  Company Number: NL-BAYER-200713328GDS

PATIENT
  Age: 66 Year
  Sex: Male

DRUGS (14)
  1. SORAFENIB [Suspect]
     Indication: NON-SMALL CELL LUNG CANCER
     Route: 048
     Dates: start: 20070601, end: 20070601
  2. CARBOPLATIN [Suspect]
     Indication: NON-SMALL CELL LUNG CANCER
     Route: 042
     Dates: start: 20070601, end: 20070601
  3. PACLITAXEL [Suspect]
     Indication: NON-SMALL CELL LUNG CANCER
     Route: 042
     Dates: start: 20070601, end: 20070601
  4. PANTOZOL [Concomitant]
     Indication: DYSPEPSIA
     Route: 048
     Dates: start: 20070323
  5. ATENOLOL [Concomitant]
     Indication: CARDIAC DISORDER
     Route: 048
     Dates: start: 19960101
  6. GABAPENTIN [Concomitant]
     Indication: PAIN
     Route: 048
     Dates: start: 20070315
  7. OMNIC [Concomitant]
     Indication: BENIGN PROSTATIC HYPERPLASIA
     Route: 048
     Dates: start: 20000101
  8. DIAZEPAM [Concomitant]
     Indication: NERVOUSNESS
     Route: 048
     Dates: start: 20030101
  9. ATROVENT [Concomitant]
     Indication: BRONCHITIS
     Route: 065
     Dates: start: 20021220
  10. BRICANYL [Concomitant]
     Indication: BRONCHITIS
     Route: 065
     Dates: start: 20040101
  11. FENTANYL [Concomitant]
     Indication: PAIN
     Route: 065
     Dates: start: 20070312
  12. OXYNORM [Concomitant]
     Indication: PAIN
     Route: 065
     Dates: start: 20070323
  13. CODEINE W/PARACETAMOL [Concomitant]
     Indication: PAIN
     Route: 065
     Dates: start: 20070309
  14. DESLORATADINE [Concomitant]
     Indication: RASH
     Route: 065
     Dates: start: 20070406

REACTIONS (2)
  - FEBRILE NEUTROPENIA [None]
  - PULMONARY EMBOLISM [None]
